FAERS Safety Report 14442075 (Version 1)
Quarter: 2018Q1

REPORT INFORMATION
  Report Type: Spontaneous
  Country: IT (occurrence: IT)
  Receive Date: 20180125
  Receipt Date: 20180125
  Transmission Date: 20180509
  Serious: Yes (Hospitalization)
  Sender: FDA-Public Use
  Company Number: IT-FRESENIUS KABI-FK201800872

PATIENT
  Age: 71 Year
  Sex: Male

DRUGS (4)
  1. ETOPOSIDE (MANUFACTURER UNKNOWN) [Suspect]
     Active Substance: ETOPOSIDE
     Indication: PROSTATE CANCER RECURRENT
     Route: 065
  2. CARBOPLATIN. [Suspect]
     Active Substance: CARBOPLATIN
     Indication: PROSTATE CANCER RECURRENT
     Route: 065
  3. ERYTHROPOIETIN [Concomitant]
     Active Substance: ERYTHROPOIETIN
     Indication: PRODUCT USED FOR UNKNOWN INDICATION
  4. GRANULOKINES [Concomitant]
     Indication: PRODUCT USED FOR UNKNOWN INDICATION

REACTIONS (1)
  - Inappropriate antidiuretic hormone secretion [Unknown]
